FAERS Safety Report 9807374 (Version 2)
Quarter: 2014Q1

REPORT INFORMATION
  Report Type: Spontaneous
  Country: IT (occurrence: IT)
  Receive Date: 20140110
  Receipt Date: 20140328
  Transmission Date: 20141002
  Serious: Yes (Hospitalization)
  Sender: FDA-Public Use
  Company Number: IT-ROCHE-1331467

PATIENT
  Age: 72 Year
  Sex: Male

DRUGS (13)
  1. RIVOTRIL [Suspect]
     Indication: PRODUCT USED FOR UNKNOWN INDICATION
     Route: 065
     Dates: start: 20130910, end: 20130918
  2. SEROQUEL [Suspect]
     Indication: PRODUCT USED FOR UNKNOWN INDICATION
     Route: 048
     Dates: start: 20130910, end: 20130918
  3. TRITTICO [Suspect]
     Indication: PRODUCT USED FOR UNKNOWN INDICATION
     Route: 065
     Dates: start: 20130910, end: 20130918
  4. METOCLOPRAMIDE [Concomitant]
  5. RANITIDINE [Concomitant]
  6. LEVOFLOXACIN [Concomitant]
  7. CARVEDILOL [Concomitant]
  8. ALLOPURINOL [Concomitant]
  9. LANTUS [Concomitant]
  10. CLEXANE [Concomitant]
  11. SPIRIVA [Concomitant]
  12. SERETIDE [Concomitant]
  13. HUMALOG [Concomitant]

REACTIONS (1)
  - Sopor [Recovering/Resolving]
